FAERS Safety Report 16889592 (Version 1)
Quarter: 2019Q4

REPORT INFORMATION
  Report Type: Report from Study
  Country: US (occurrence: US)
  Receive Date: 20191007
  Receipt Date: 20191007
  Transmission Date: 20200122
  Serious: Yes (Other)
  Sender: FDA-Public Use
  Company Number: US-ROCHE-2431151

PATIENT

DRUGS (2)
  1. CAPECITABINE. [Suspect]
     Active Substance: CAPECITABINE
     Indication: ADENOCARCINOMA
     Dosage: ON DAY 1-14 EVERY 21 DAYS
     Route: 048
  2. EDRECOLOMAB [Suspect]
     Active Substance: EDRECOLOMAB
     Indication: ADENOCARCINOMA
     Route: 042

REACTIONS (4)
  - Palmar-plantar erythrodysaesthesia syndrome [Unknown]
  - Infusion related reaction [Unknown]
  - Anaemia [Unknown]
  - Diarrhoea [Unknown]
